FAERS Safety Report 17297946 (Version 2)
Quarter: 2020Q1

REPORT INFORMATION
  Report Type: Spontaneous
  Country: US (occurrence: US)
  Receive Date: 20200121
  Receipt Date: 20200127
  Transmission Date: 20200409
  Serious: Yes (Death, Life-Threatening, Hospitalization, Other)
  Sender: FDA-Public Use
  Company Number: US-PFIZER INC-2020024866

PATIENT
  Age: 68 Year
  Sex: Male

DRUGS (14)
  1. DEXTROSE. [Concomitant]
     Active Substance: DEXTROSE
     Indication: HEPARIN-INDUCED THROMBOCYTOPENIA
     Dosage: UNK
  2. NOREPINEPHRINE BITARTRATE. [Suspect]
     Active Substance: NOREPINEPHRINE BITARTRATE
     Dosage: 0.05 UG/KG, UNK (0.05 MCG/KG/MIN)
  3. VASOPRESSIN. [Suspect]
     Active Substance: VASOPRESSIN
     Indication: HYPOTENSION
     Dosage: UNK (MAXIMAL DOSES)
  4. ARGATROBAN. [Concomitant]
     Active Substance: ARGATROBAN
     Indication: CARDIOGENIC SHOCK
  5. NOREPINEPHRINE BITARTRATE. [Suspect]
     Active Substance: NOREPINEPHRINE BITARTRATE
     Indication: HYPOTENSION
     Dosage: UNK (MAXIMAL DOSES)
  6. AMIODARONE [Concomitant]
     Active Substance: AMIODARONE
     Indication: ATRIAL FIBRILLATION
     Dosage: UNK
  7. ARGATROBAN. [Concomitant]
     Active Substance: ARGATROBAN
     Indication: ANTICOAGULANT THERAPY
     Dosage: UNK (PURGE SOLUTION: STARTED AT A CONCENTRATION OF 0.12 MG/ML, DECREASED TO 0.06 MG/ML, THEN TO 0.01
  8. NOREPINEPHRINE BITARTRATE. [Suspect]
     Active Substance: NOREPINEPHRINE BITARTRATE
     Dosage: 0.32 UG/KG, UNK (VASOACTIVE AGENT DOSES RANGED FROM 0 TO 0.32 MCG/KG/MIN OF NOREPINEPHRINE)
  9. DOBUTAMINE HCL [Suspect]
     Active Substance: DOBUTAMINE HYDROCHLORIDE
     Indication: HYPOTENSION
     Dosage: UNK (MAXIMAL DOSES)
  10. VASOPRESSIN. [Suspect]
     Active Substance: VASOPRESSIN
     Dosage: 0.5 IU, UNK (0 TO 0.5 UNITS/H OF VASOPRESSIN THROUGHOUT THE HOSPITAL COURSE)
  11. VASOPRESSIN. [Suspect]
     Active Substance: VASOPRESSIN
     Dosage: 0.02 IU, UNK
  12. ARGATROBAN. [Concomitant]
     Active Substance: ARGATROBAN
     Indication: ACUTE MYOCARDIAL INFARCTION
  13. NOREPINEPHRINE BITARTRATE. [Suspect]
     Active Substance: NOREPINEPHRINE BITARTRATE
     Dosage: 4 UG/KG, UNK (4 MCG/KG/MIN)
  14. ARGATROBAN. [Concomitant]
     Active Substance: ARGATROBAN
     Indication: HEPARIN-INDUCED THROMBOCYTOPENIA

REACTIONS (1)
  - Drug ineffective [Fatal]
